FAERS Safety Report 12240322 (Version 3)
Quarter: 2016Q3

REPORT INFORMATION
  Report Type: Spontaneous
  Country: US (occurrence: US)
  Receive Date: 20160405
  Receipt Date: 20160715
  Transmission Date: 20161109
  Serious: Yes (Life-Threatening)
  Sender: FDA-Public Use
  Company Number: US-PFIZER INC-2016186792

PATIENT
  Age: 55 Year
  Sex: Female

DRUGS (1)
  1. CHANTIX [Suspect]
     Active Substance: VARENICLINE TARTRATE
     Indication: SMOKING CESSATION THERAPY
     Dosage: UNK
     Route: 048
     Dates: start: 2004, end: 2004

REACTIONS (2)
  - Somnolence [Recovered/Resolved]
  - Impaired work ability [Recovered/Resolved]

NARRATIVE: CASE EVENT DATE: 2004
